FAERS Safety Report 7699532-2 (Version None)
Quarter: 2011Q3

REPORT INFORMATION
  Report Type: 
  Country: None (occurrence: None)
  Receive Date: 20110820
  Receipt Date: 20110809
  Transmission Date: 20111222
  Serious: Yes (Other)
  Sender: FDA-Public Use
  Company Number: US-AMGEN-USASP2011040447

PATIENT
  Age: 44 Year
  Sex: Female

DRUGS (1)
  1. ENBREL [Suspect]
     Indication: PSORIATIC ARTHROPATHY
     Dosage: 50 MG, QWK
     Dates: start: 20110601

REACTIONS (12)
  - WALKING AID USER [None]
  - PAIN IN EXTREMITY [None]
  - OEDEMA PERIPHERAL [None]
  - PARAESTHESIA [None]
  - HYPERMETROPIA [None]
  - ARTHRALGIA [None]
  - VISION BLURRED [None]
  - STOMATITIS [None]
  - RASH ERYTHEMATOUS [None]
  - IMPAIRED HEALING [None]
  - PAIN [None]
  - JOINT SWELLING [None]
